FAERS Safety Report 17644159 (Version 1)
Quarter: 2020Q2

REPORT INFORMATION
  Report Type: Spontaneous
  Country: US (occurrence: US)
  Receive Date: 20200408
  Receipt Date: 20200408
  Transmission Date: 20200713
  Serious: Yes (Other)
  Sender: FDA-Public Use
  Company Number: None

PATIENT
  Age: 83 Year
  Sex: Female

DRUGS (2)
  1. LOVENOX [Suspect]
     Active Substance: ENOXAPARIN SODIUM
     Indication: THROMBOSIS
     Route: 042
  2. LOVENOX [Suspect]
     Active Substance: ENOXAPARIN SODIUM
     Indication: CELLULITIS
     Route: 042

REACTIONS (1)
  - Injection site bruising [None]
